FAERS Safety Report 13925550 (Version 1)
Quarter: 2017Q3

REPORT INFORMATION
  Report Type: Spontaneous
  Country: US (occurrence: US)
  Receive Date: 20170831
  Receipt Date: 20170831
  Transmission Date: 20171127
  Serious: No
  Sender: FDA-Public Use
  Company Number: US-SA-2017SA118151

PATIENT
  Age: 31 Year
  Sex: Female

DRUGS (4)
  1. SOLOSTAR [Concomitant]
     Active Substance: DEVICE
     Indication: DIABETES MELLITUS
     Dates: start: 20170330, end: 20170426
  2. DICLOFENAC [Concomitant]
     Active Substance: DICLOFENAC
     Dosage: DROPS
     Route: 065
  3. LIDOCAINE. [Concomitant]
     Active Substance: LIDOCAINE
     Route: 065
  4. SOLIQUA 100/33 [Suspect]
     Active Substance: INSULIN GLARGINE\LIXISENATIDE
     Indication: DIABETES MELLITUS
     Dosage: DOSE:18 UNIT(S)
     Route: 065
     Dates: start: 20170330, end: 20170426

REACTIONS (5)
  - Chest pain [Unknown]
  - Pruritus [Unknown]
  - Dyspnoea [Unknown]
  - Palpitations [Unknown]
  - Urticaria [Unknown]

NARRATIVE: CASE EVENT DATE: 2017
